FAERS Safety Report 4852413-1 (Version None)
Quarter: 2005Q4

REPORT INFORMATION
  Report Type: 
  Country: None (occurrence: None)
  Receive Date: 20051123
  Receipt Date: 20050128
  Transmission Date: 20060501
  Serious: Yes (Other)
  Sender: FDA-Public Use
  Company Number: US-JNJFOC-20041203982

PATIENT
  Age: 91 Year
  Sex: Female
  Weight: 66.2252 kg

DRUGS (6)
  1. LEVAQUIN [Suspect]
     Indication: PNEUMONIA
     Dosage: 500 MG, INTRAVENOUS
     Route: 042
     Dates: start: 20041029, end: 20041030
  2. TOPROL-XL [Concomitant]
  3. DIOVAN [Concomitant]
  4. ARICEPT [Concomitant]
  5. LOTREL [Concomitant]
  6. ZOLOFT [Concomitant]

REACTIONS (1)
  - BLOOD CREATINE INCREASED [None]
